FAERS Safety Report 4517993-4 (Version None)
Quarter: 2004Q4

REPORT INFORMATION
  Report Type: 
  Country: None (occurrence: None)
  Receive Date: 20041130
  Receipt Date: 20041116
  Transmission Date: 20050328
  Serious: Yes (Hospitalization, Other)
  Sender: FDA-Public Use
  Company Number: USA040877016

PATIENT
  Age: 79 Year
  Sex: Male
  Weight: 84 kg

DRUGS (16)
  1. FORTEO [Suspect]
     Indication: OSTEOPOROSIS
     Dosage: 20 UG
     Dates: start: 20040828
  2. FUROSEMIDE [Concomitant]
  3. KCL (POTASSIUM CHLORIDE) [Concomitant]
  4. ACETYLSALICYLIC ACID SRT [Concomitant]
  5. SYNTHROID [Concomitant]
  6. COUMADIN [Concomitant]
  7. LEXAPRO [Concomitant]
  8. DARVOCET-N 100 [Concomitant]
  9. ZOCOR (SIMVASTATIN RATIOPHARM) [Concomitant]
  10. CLINDAMYCIN HCL [Concomitant]
  11. DICYCLOMINE [Concomitant]
  12. MEXILETINE [Concomitant]
  13. INSULIN [Concomitant]
  14. PRILOSEC (OMEPRAZOLE RATIOPHARM) [Concomitant]
  15. COREG [Concomitant]
  16. CLONAZEPAM [Concomitant]

REACTIONS (13)
  - CARDIAC FAILURE CONGESTIVE [None]
  - DIFFICULTY IN WALKING [None]
  - DIZZINESS [None]
  - HEART RATE IRREGULAR [None]
  - LOCAL SWELLING [None]
  - LOCALISED INFECTION [None]
  - MEDICATION ERROR [None]
  - NECK PAIN [None]
  - PAIN IN JAW [None]
  - PHARMACEUTICAL PRODUCT COMPLAINT [None]
  - POST PROCEDURAL COMPLICATION [None]
  - SALIVARY GLAND CALCULUS [None]
  - SIALOADENITIS [None]
